FAERS Safety Report 18823090 (Version 2)
Quarter: 2021Q1

REPORT INFORMATION
  Report Type: Other
  Country: ES (occurrence: ES)
  Receive Date: 20210202
  Receipt Date: 20210208
  Transmission Date: 20210419
  Serious: No
  Sender: FDA-Public Use
  Company Number: ES-ROCHE-2760419

PATIENT
  Sex: Male

DRUGS (19)
  1. ATEZOLIZUMAB. [Suspect]
     Active Substance: ATEZOLIZUMAB
     Dosage: FORM STRENGTH: 1200 MG/20 ML
     Route: 041
     Dates: start: 20191002
  2. ATEZOLIZUMAB. [Suspect]
     Active Substance: ATEZOLIZUMAB
     Dosage: FORM STRENGTH: 1200 MG/20 ML
     Route: 041
     Dates: start: 20190918
  3. ATEZOLIZUMAB. [Suspect]
     Active Substance: ATEZOLIZUMAB
     Dosage: FORM STRENGTH: 1200 MG/20 ML
     Route: 041
     Dates: start: 20190905
  4. ATEZOLIZUMAB. [Suspect]
     Active Substance: ATEZOLIZUMAB
     Route: 041
     Dates: start: 20191224
  5. ATEZOLIZUMAB. [Suspect]
     Active Substance: ATEZOLIZUMAB
     Dosage: FORM STRENGTH: 1200 MG/20 ML
     Route: 041
     Dates: start: 20191127
  6. ATEZOLIZUMAB. [Suspect]
     Active Substance: ATEZOLIZUMAB
     Dosage: FORM STRENGTH: 1200 MG/20 ML
     Route: 041
     Dates: start: 20191112
  7. ATEZOLIZUMAB. [Suspect]
     Active Substance: ATEZOLIZUMAB
     Dosage: FORM STRENGTH: 1200 MG/20 ML
     Route: 041
     Dates: start: 20191029
  8. COTELLIC [Suspect]
     Active Substance: COBIMETINIB
     Dosage: 63 TABLETS
     Route: 065
     Dates: start: 20191211
  9. ATEZOLIZUMAB. [Suspect]
     Active Substance: ATEZOLIZUMAB
     Dosage: FORM STRENGTH: 1200 MG/20 ML
     Route: 041
     Dates: start: 20200108
  10. ATEZOLIZUMAB. [Suspect]
     Active Substance: ATEZOLIZUMAB
     Dosage: FORM STRENGTH: 1200 MG/20 ML
     Route: 041
     Dates: start: 20190822
  11. COTELLIC [Suspect]
     Active Substance: COBIMETINIB
     Indication: MALIGNANT MELANOMA
     Dosage: WAS STPPED
     Route: 065
  12. COTELLIC [Suspect]
     Active Substance: COBIMETINIB
     Route: 065
  13. COTELLIC [Suspect]
     Active Substance: COBIMETINIB
     Dosage: 63 TABLETS
     Route: 065
     Dates: start: 20200108
  14. COTELLIC [Suspect]
     Active Substance: COBIMETINIB
     Dosage: 63 TABLETS
     Route: 065
     Dates: start: 20190822
  15. ATEZOLIZUMAB. [Suspect]
     Active Substance: ATEZOLIZUMAB
     Indication: MALIGNANT MELANOMA
     Dosage: FORM STRENGTH: 1200MG/20ML
     Route: 041
     Dates: start: 20200122
  16. COTELLIC [Suspect]
     Active Substance: COBIMETINIB
     Dosage: 63 TABLETS
     Route: 065
     Dates: start: 20191112
  17. ATEZOLIZUMAB. [Suspect]
     Active Substance: ATEZOLIZUMAB
     Dosage: FORM STRENGTH: 1200 MG/20 ML
     Route: 041
     Dates: start: 20191211
  18. COTELLIC [Suspect]
     Active Substance: COBIMETINIB
     Dosage: 63 TABLETS
     Route: 065
     Dates: start: 20191017
  19. COTELLIC [Suspect]
     Active Substance: COBIMETINIB
     Dosage: 63 TABLETS
     Route: 065
     Dates: start: 20190918

REACTIONS (1)
  - Conjunctivitis [Recovering/Resolving]

NARRATIVE: CASE EVENT DATE: 20201015
